FAERS Safety Report 6003536-5 (Version None)
Quarter: 2008Q4

REPORT INFORMATION
  Report Type: 
  Country: None (occurrence: None)
  Receive Date: 20081212
  Receipt Date: 20081212
  Transmission Date: 20090506
  Serious: Yes (Death)
  Sender: FDA-Public Use
  Company Number: None

PATIENT
  Sex: Female
  Weight: 65.7716 kg

DRUGS (2)
  1. DURALGESIC [Suspect]
     Indication: CHEMOTHERAPY
     Dates: start: 20081123, end: 20081125
  2. DURALGESIC [Suspect]
     Indication: HEADACHE
     Dates: start: 20081123, end: 20081125

REACTIONS (4)
  - ASPIRATION [None]
  - COMA [None]
  - OVERDOSE [None]
  - RESPIRATORY FAILURE [None]
